FAERS Safety Report 7922026-3 (Version None)
Quarter: 2011Q4

REPORT INFORMATION
  Report Type: 
  Country: None (occurrence: None)
  Receive Date: 20111117
  Receipt Date: 20111109
  Transmission Date: 20120403
  Serious: Yes (Hospitalization, Other)
  Sender: FDA-Public Use
  Company Number: US-AMGEN-USASP2011058972

PATIENT
  Age: 39 Year
  Sex: Female
  Weight: 109 kg

DRUGS (7)
  1. EPOGEN [Suspect]
     Indication: ANAEMIA
     Dosage: 20000 IU, 3 TIMES/WK
     Route: 058
     Dates: start: 20100101
  2. PHOSLO [Concomitant]
     Dosage: 3 MG, TID
  3. LASIX [Concomitant]
     Dosage: 3 MG, TID
  4. PROFERRIN [Concomitant]
     Dosage: 1 MG, BID
  5. ARANESP [Suspect]
     Indication: ANAEMIA
     Dates: start: 20090401, end: 20100101
  6. VENOFER [Concomitant]
     Dosage: UNK
  7. VITAMIN D [Concomitant]

REACTIONS (5)
  - THERAPEUTIC RESPONSE DECREASED [None]
  - INFECTION [None]
  - HERNIA [None]
  - GYNAECOLOGICAL EXAMINATION ABNORMAL [None]
  - INFECTIOUS PERITONITIS [None]
